FAERS Safety Report 15530199 (Version 1)
Quarter: 2018Q4

REPORT INFORMATION
  Report Type: Spontaneous
  Country: CH (occurrence: CH)
  Receive Date: 20181018
  Receipt Date: 20181018
  Transmission Date: 20190205
  Serious: Yes (Life-Threatening, Hospitalization, Other)
  Sender: FDA-Public Use
  Company Number: CH-PFIZER INC-2018423294

PATIENT
  Age: 73 Year
  Sex: Male
  Weight: 66 kg

DRUGS (7)
  1. METHOTREXATE SODIUM. [Interacting]
     Active Substance: METHOTREXATE SODIUM
     Dosage: 10 MG, WEEKLY (10 MG,1 IN 1 WK)
     Route: 048
     Dates: start: 20180601, end: 20180928
  2. LEFLUNOMID GEBRO [Interacting]
     Active Substance: LEFLUNOMIDE
     Indication: RHEUMATOID ARTHRITIS
     Dosage: 10 MG, 1X/DAY (24 HR)
     Route: 048
     Dates: start: 20180601, end: 20180928
  3. ELTROXIN [Concomitant]
     Active Substance: LEVOTHYROXINE
     Dosage: 0.15 MG, 1X/DAY (24 HR)
     Route: 048
     Dates: start: 20170818
  4. ACIDUM FOLICUM STREULI [Concomitant]
     Active Substance: FOLIC ACID
     Dosage: 5 MG, WEEKLY
     Route: 048
     Dates: start: 20170403
  5. XARELTO [Concomitant]
     Active Substance: RIVAROXABAN
     Dosage: 20 MG, 1X/DAY (24 HR)
     Route: 048
     Dates: start: 20170301
  6. METHOTREXATE SODIUM. [Suspect]
     Active Substance: METHOTREXATE SODIUM
     Indication: RHEUMATOID ARTHRITIS
     Dosage: 20 MG, WEEKLY (20 MG,1 IN 1 WK)
     Route: 048
     Dates: start: 20170403, end: 201805
  7. CORDARONE [Concomitant]
     Active Substance: AMIODARONE HYDROCHLORIDE
     Dosage: 200 MG, 1X/DAY (24 HR)
     Route: 048
     Dates: start: 20170301

REACTIONS (6)
  - Drug interaction [Unknown]
  - Feeding disorder [Unknown]
  - Pancytopenia [Recovering/Resolving]
  - Aphthous ulcer [Recovering/Resolving]
  - Renal failure [Unknown]
  - General physical health deterioration [Unknown]

NARRATIVE: CASE EVENT DATE: 20180601
